FAERS Safety Report 5264326-4 (Version None)
Quarter: 2007Q1

REPORT INFORMATION
  Report Type: 
  Country: None (occurrence: None)
  Receive Date: 20070313
  Receipt Date: 20070305
  Transmission Date: 20070707
  Serious: Yes (Other)
  Sender: FDA-Public Use
  Company Number: US-MERCK-0703USA00811

PATIENT

DRUGS (1)
  1. JANUVIA [Suspect]
     Route: 048

REACTIONS (1)
  - PANCREATITIS [None]
